FAERS Safety Report 12964817 (Version 2)
Quarter: 2017Q3

REPORT INFORMATION
  Report Type: Spontaneous
  Country: US (occurrence: US)
  Receive Date: 20161122
  Receipt Date: 20170918
  Transmission Date: 20171127
  Serious: Yes (Death, Life-Threatening, Hospitalization, Other)
  Sender: FDA-Public Use
  Company Number: US-SIGMA-TAU US-2016STPI000745

PATIENT
  Age: 58 Year
  Sex: Male

DRUGS (7)
  1. MATULANE [Suspect]
     Active Substance: PROCARBAZINE HYDROCHLORIDE
     Indication: MALIGNANT GLIOMA
     Dosage: 150 MG, QD DAYS 8-21
     Route: 048
     Dates: start: 20160809, end: 20160823
  2. NIVOLUMAB [Suspect]
     Active Substance: NIVOLUMAB
     Indication: MALIGNANT GLIOMA
     Dosage: 3 MG/KG, X1
     Dates: start: 20160929, end: 20161013
  3. AVASTIN [Suspect]
     Active Substance: BEVACIZUMAB
     Indication: MALIGNANT GLIOMA
     Dosage: 5 MG/KG, OTHER
     Route: 042
     Dates: start: 20160809, end: 20160830
  4. OPDIVO [Suspect]
     Active Substance: NIVOLUMAB
     Indication: MALIGNANT GLIOMA
     Dosage: 330 MG, UNK
     Dates: start: 20160928, end: 201610
  5. AVASTIN [Suspect]
     Active Substance: BEVACIZUMAB
     Dosage: 1100 MG, UNK
     Dates: start: 201609, end: 201610
  6. CCNU [Suspect]
     Active Substance: LOMUSTINE
     Indication: MALIGNANT GLIOMA
     Dosage: 150 MG, X1
     Route: 048
     Dates: start: 20160802
  7. VINCRISTINE [Suspect]
     Active Substance: VINCRISTINE
     Indication: MALIGNANT GLIOMA
     Dosage: 2 MG, OTHER
     Route: 042
     Dates: start: 20160809, end: 20160830

REACTIONS (7)
  - Immune thrombocytopenic purpura [Fatal]
  - Acute hepatic failure [Fatal]
  - Disease progression [Fatal]
  - Anaemia [Fatal]
  - Neutropenia [Not Recovered/Not Resolved]
  - Deep vein thrombosis [None]
  - Rectal haemorrhage [None]

NARRATIVE: CASE EVENT DATE: 201609
